FAERS Safety Report 10020638 (Version 2)
Quarter: 2014Q2

REPORT INFORMATION
  Report Type: Report from Study
  Country: DK (occurrence: DK)
  Receive Date: 20140319
  Receipt Date: 20140409
  Transmission Date: 20141212
  Serious: Yes (Hospitalization, Other)
  Sender: FDA-Public Use
  Company Number: DK-BRISTOL-MYERS SQUIBB COMPANY-20478376

PATIENT
  Age: 61 Year
  Sex: Female

DRUGS (7)
  1. CETUXIMAB [Suspect]
     Indication: NEOPLASM MALIGNANT
     Dosage: INTERRUP:06FEB14.?27FEB14-ONGOING.
     Route: 042
     Dates: start: 20140123
  2. AMLODIPINE [Concomitant]
     Dates: start: 201006
  3. LOSARTAN POTASSIUM [Concomitant]
     Dates: start: 201006
  4. CENTYL K [Concomitant]
     Dates: start: 201006
  5. PANTOPRAZOLE [Concomitant]
     Dates: start: 20140122, end: 20140122
  6. PANODIL [Concomitant]
     Dates: start: 20140122, end: 20140205
  7. CODEINE [Concomitant]
     Dates: start: 20140205

REACTIONS (3)
  - Platelet count decreased [Recovered/Resolved]
  - Pneumonia [Recovering/Resolving]
  - Infusion related reaction [Recovered/Resolved]
